FAERS Safety Report 4810903-1 (Version None)
Quarter: 2005Q4

REPORT INFORMATION
  Report Type: 
  Country: None (occurrence: None)
  Receive Date: 20051025
  Receipt Date: 20051010
  Transmission Date: 20060501
  Serious: Yes (Death)
  Sender: FDA-Public Use
  Company Number: 2005-115DP

PATIENT
  Age: 34 Year
  Sex: Male
  Weight: 144.2439 kg

DRUGS (3)
  1. VALPROIC ACID [Suspect]
     Indication: CONVULSION
     Dosage: 750 MG BID ORAL
     Route: 048
  2. TOPIRAMATE [Suspect]
     Indication: CONVULSION
     Dosage: 400 MG BID ORAL
     Route: 048
  3. CONTINUOUS POSITIVE AIRWAY PRESSURE MASK [Concomitant]

REACTIONS (1)
  - CARDIO-RESPIRATORY ARREST [None]
